FAERS Safety Report 18750538 (Version 2)
Quarter: 2021Q3

REPORT INFORMATION
  Report Type: Spontaneous
  Country: JP (occurrence: JP)
  Receive Date: 20210118
  Receipt Date: 20210730
  Transmission Date: 20211014
  Serious: Yes (Other)
  Sender: FDA-Public Use
  Company Number: JP-ROCHE-2751421

PATIENT
  Age: 8 Decade
  Sex: Female

DRUGS (2)
  1. PACLITAXEL ALBUMIN [Concomitant]
     Active Substance: PACLITAXEL
     Indication: TRIPLE NEGATIVE BREAST CANCER
     Route: 041
  2. TECENTRIQ [Suspect]
     Active Substance: ATEZOLIZUMAB
     Indication: TRIPLE NEGATIVE BREAST CANCER
     Route: 041
     Dates: start: 20200721, end: 20201222

REACTIONS (1)
  - Cholangitis sclerosing [Recovering/Resolving]

NARRATIVE: CASE EVENT DATE: 20210105
